FAERS Safety Report 15590281 (Version 1)
Quarter: 2018Q4

REPORT INFORMATION
  Report Type: Report from Study
  Country: US (occurrence: US)
  Receive Date: 20181106
  Receipt Date: 20181106
  Transmission Date: 20190205
  Serious: Yes (Death)
  Sender: FDA-Public Use
  Company Number: US-ROCHE-2002728

PATIENT
  Age: 73 Year
  Sex: Female

DRUGS (2)
  1. VALCYTE [Suspect]
     Active Substance: VALGANCICLOVIR HYDROCHLORIDE
     Indication: T-CELL PROLYMPHOCYTIC LEUKAEMIA
     Route: 048
  2. VALCYTE [Suspect]
     Active Substance: VALGANCICLOVIR HYDROCHLORIDE
     Route: 048

REACTIONS (8)
  - Intentional product use issue [Fatal]
  - Deep vein thrombosis [Fatal]
  - Off label use [Fatal]
  - Pneumonia [Fatal]
  - Cytomegalovirus infection [Fatal]
  - T-cell prolymphocytic leukaemia [Fatal]
  - Renal disorder [Fatal]
  - Atrial fibrillation [Fatal]

NARRATIVE: CASE EVENT DATE: 201708
